FAERS Safety Report 8824386 (Version 2)
Quarter: 2012Q4

REPORT INFORMATION
  Report Type: 
  Country: US (occurrence: US)
  Receive Date: 20121004
  Receipt Date: 20121025
  Transmission Date: 20130627
  Serious: No
  Sender: FDA-Public Use
  Company Number: PHEH2012US017128

PATIENT
  Age: 96 Year
  Sex: Female

DRUGS (5)
  1. TASIGNA [Suspect]
     Indication: CHRONIC MYELOID LEUKAEMIA
     Dosage: 400 mg, Q12H
     Route: 048
     Dates: start: 20120707
  2. TASIGNA [Suspect]
     Dosage: 150 mg, daily
  3. XOLAIR [Concomitant]
  4. NEXIUM [Concomitant]
  5. RANITIDINE [Concomitant]

REACTIONS (3)
  - Gastrointestinal tract irritation [Not Recovered/Not Resolved]
  - Nausea [Not Recovered/Not Resolved]
  - Vomiting [Not Recovered/Not Resolved]
